FAERS Safety Report 13944015 (Version 1)
Quarter: 2017Q3

REPORT INFORMATION
  Report Type: Spontaneous
  Country: FR (occurrence: FR)
  Receive Date: 20170907
  Receipt Date: 20170907
  Transmission Date: 20171128
  Serious: Yes (Hospitalization, Other)
  Sender: FDA-Public Use
  Company Number: FR-IMPAX LABORATORIES, INC-2017-IPXL-02599

PATIENT
  Age: 82 Year
  Sex: Male

DRUGS (1)
  1. METFORMIN HYDROCHLORIDE ER [Suspect]
     Active Substance: METFORMIN HYDROCHLORIDE
     Indication: DIABETES MELLITUS
     Dosage: 2.5 G, DAILY
     Route: 065

REACTIONS (5)
  - Drug level increased [Unknown]
  - Lactic acidosis [Recovering/Resolving]
  - Renal failure [Recovering/Resolving]
  - Post procedural sepsis [Recovering/Resolving]
  - Medication error [Unknown]
